FAERS Safety Report 5757847-9 (Version None)
Quarter: 2008Q2

REPORT INFORMATION
  Report Type: 
  Country: None (occurrence: None)
  Receive Date: 20080603
  Receipt Date: 20080527
  Transmission Date: 20081010
  Serious: Yes (Other)
  Sender: FDA-Public Use
  Company Number: PHEH2007US13698

PATIENT
  Sex: Female
  Weight: 64.399 kg

DRUGS (7)
  1. AREDIA [Suspect]
     Indication: METASTASES TO BONE
     Dosage: 90 MG, QMO
     Route: 042
     Dates: start: 20010801, end: 20041011
  2. ZOMETA [Suspect]
     Dosage: 4 MG, UNK
     Route: 042
     Dates: start: 20020524
  3. ARIMIDEX [Concomitant]
     Dosage: UNK
     Dates: start: 20010801
  4. FASLODEX [Concomitant]
     Dosage: 250 MG, QMO
     Route: 030
     Dates: start: 20041213
  5. NAVELBINE [Concomitant]
     Dosage: UNK, UNK
  6. TAXOTERE [Concomitant]
     Dosage: 20 MG, UNK
  7. GEMZAR [Concomitant]

REACTIONS (24)
  - BACK PAIN [None]
  - COMPUTERISED TOMOGRAM ABNORMAL [None]
  - DEEP VEIN THROMBOSIS [None]
  - DEPRESSIVE SYMPTOM [None]
  - DEVICE RELATED INFECTION [None]
  - FACE AND MOUTH X-RAY ABNORMAL [None]
  - FAILURE OF IMPLANT [None]
  - FATIGUE [None]
  - GINGIVAL INFECTION [None]
  - GINGIVAL OEDEMA [None]
  - GINGIVAL RECESSION [None]
  - HYPERBARIC OXYGEN THERAPY [None]
  - HYPERCOAGULATION [None]
  - IMPAIRED HEALING [None]
  - LOCALISED INFECTION [None]
  - LOOSE TOOTH [None]
  - OSTEITIS [None]
  - OSTEOMYELITIS [None]
  - OSTEONECROSIS [None]
  - OSTEOSCLEROSIS [None]
  - SPINAL FUSION SURGERY [None]
  - SURGERY [None]
  - TENDERNESS [None]
  - TOOTH EXTRACTION [None]
